FAERS Safety Report 23628368 (Version 1)
Quarter: 2024Q1

REPORT INFORMATION
  Report Type: Spontaneous
  Country: US (occurrence: US)
  Receive Date: 20240313
  Receipt Date: 20240313
  Transmission Date: 20240410
  Serious: Yes (Other)
  Sender: FDA-Public Use
  Company Number: US-CMP PHARMA-2024CMP00004

PATIENT
  Age: 29 Year
  Sex: Male

DRUGS (1)
  1. TADALAFIL [Suspect]
     Active Substance: TADALAFIL
     Dosage: LIQUID; OBTAINED FROM FRIEND

REACTIONS (1)
  - Generalised bullous fixed drug eruption [Recovering/Resolving]
